FAERS Safety Report 7669021-X (Version None)
Quarter: 2011Q3

REPORT INFORMATION
  Report Type: 
  Country: None (occurrence: None)
  Receive Date: 20110808
  Receipt Date: 20110803
  Transmission Date: 20111222
  Serious: Yes (Other)
  Sender: FDA-Public Use
  Company Number: US-PFIZER INC-2011084448

PATIENT
  Age: 64 Year
  Sex: Male

DRUGS (14)
  1. ALLOPURINOL [Concomitant]
  2. LISINOPRIL [Concomitant]
     Dosage: UNK
  3. NPH INSULIN [Concomitant]
     Dosage: 35 U EVERY MORNING
  4. WARFARIN [Concomitant]
  5. CITALOPRAM [Concomitant]
  6. COLCHICINE [Concomitant]
  7. METFORMIN [Concomitant]
     Dosage: 1000 MG, BID
  8. AMLODIPINE BESILATE [Concomitant]
  9. CARVEDILOL [Concomitant]
  10. GLYBURIDE [Concomitant]
     Dosage: 5 MG, BID
  11. LINEZOLID [Suspect]
     Dosage: 600 MG, 2X/DAY
     Route: 048
  12. PRAVASTATIN [Concomitant]
  13. GLYBURIDE [Concomitant]
     Dosage: 2.5  MG, BID
  14. NPH INSULIN [Concomitant]
     Dosage: 25 U NIGHTLY

REACTIONS (1)
  - HYPOGLYCAEMIA [None]
